FAERS Safety Report 4284485-X (Version None)
Quarter: 2004Q1

REPORT INFORMATION
  Report Type: 
  Country: None (occurrence: None)
  Receive Date: 20040130
  Receipt Date: 20040120
  Transmission Date: 20041129
  Serious: Yes (Other)
  Sender: FDA-Public Use
  Company Number: 2003118504

PATIENT
  Age: 11 Year
  Sex: Male
  Weight: 51.7101 kg

DRUGS (1)
  1. ZYRTEC [Suspect]
     Indication: HYPERSENSITIVITY
     Dosage: 10 MG (DAILY), ORAL
     Route: 048

REACTIONS (5)
  - GRIMACING [None]
  - HYPOAESTHESIA [None]
  - MUSCLE SPASMS [None]
  - MYOCLONIC EPILEPSY [None]
  - PARAESTHESIA [None]
